FAERS Safety Report 17327103 (Version 2)
Quarter: 2020Q1

REPORT INFORMATION
  Report Type: Report from Study
  Country: HN (occurrence: HN)
  Receive Date: 20200127
  Receipt Date: 20200210
  Transmission Date: 20200409
  Serious: Yes (Other)
  Sender: FDA-Public Use
  Company Number: NVSC2020HN015755

PATIENT
  Age: 47 Year
  Sex: Male

DRUGS (1)
  1. EXFORGE HCT [Suspect]
     Active Substance: AMLODIPINE BESYLATE\HYDROCHLOROTHIAZIDE\VALSARTAN
     Indication: HYPERTENSION
     Dosage: 177.5 MG (APPROXIMATELY)
     Route: 065

REACTIONS (5)
  - Vertigo positional [Unknown]
  - Arrhythmia [Unknown]
  - Malaise [Unknown]
  - Headache [Unknown]
  - Overweight [Unknown]
